FAERS Safety Report 11928270 (Version 5)
Quarter: 2017Q1

REPORT INFORMATION
  Report Type: Report from Study
  Country: JP (occurrence: JP)
  Receive Date: 20160119
  Receipt Date: 20170228
  Transmission Date: 20170428
  Serious: Yes (Hospitalization, Other)
  Sender: FDA-Public Use
  Company Number: JP-INCYTE CORPORATION-2015IN004952

PATIENT
  Age: 80 Year
  Sex: Male
  Weight: 63 kg

DRUGS (15)
  1. ROCEPHIN [Suspect]
     Active Substance: CEFTRIAXONE SODIUM
     Indication: BRONCHITIS
  2. FOSFOMYCIN [Suspect]
     Active Substance: FOSFOMYCIN
     Indication: INFECTION
     Dosage: 1 G, QD
     Route: 065
     Dates: start: 20150721, end: 20150725
  3. ISOTONIC SODIUM CHLORIDE SOLUTION [Concomitant]
     Active Substance: SODIUM CHLORIDE
     Dosage: 100 ML, QMO
     Route: 065
  4. LEVOFLOXACIN (NGX) [Suspect]
     Active Substance: LEVOFLOXACIN
     Indication: INFECTION
     Dosage: 400 MG, QD
     Route: 048
     Dates: start: 20150721, end: 20150728
  5. ISOTONIC SODIUM CHLORIDE SOLUTION [Concomitant]
     Active Substance: SODIUM CHLORIDE
     Dosage: 100 ML, QMO
     Route: 065
  6. ISOTONIC SODIUM CHLORIDE SOLUTION [Concomitant]
     Active Substance: SODIUM CHLORIDE
     Indication: PRODUCT USED FOR UNKNOWN INDICATION
     Dosage: UNK
  7. ZOMETA [Concomitant]
     Active Substance: ZOLEDRONIC ACID
     Indication: PRIMARY MYELOFIBROSIS
     Dosage: 4 MG, QMO
     Route: 041
     Dates: start: 20120329
  8. ISOTONIC SODIUM CHLORIDE SOLUTION [Concomitant]
     Active Substance: SODIUM CHLORIDE
     Dosage: 100 ML, QMO
     Route: 065
  9. JAKAVI [Suspect]
     Active Substance: RUXOLITINIB
     Indication: PRIMARY MYELOFIBROSIS
     Dosage: 5 MG, BID
     Route: 048
     Dates: start: 20150228
  10. FOSFOMYCIN [Suspect]
     Active Substance: FOSFOMYCIN
     Indication: BRONCHITIS
     Dosage: 1 G, QD
     Route: 065
     Dates: start: 20151105, end: 20151109
  11. ROCEPHIN [Suspect]
     Active Substance: CEFTRIAXONE SODIUM
     Indication: INFECTION
     Dosage: 1 G, QD
     Route: 065
     Dates: start: 20150721, end: 20150725
  12. PRIMOBOLAN-DEPOT [Concomitant]
     Active Substance: METHENOLONE ENANTHATE
     Indication: PRIMARY MYELOFIBROSIS
     Dosage: 20 MG, UNK
     Route: 048
     Dates: start: 20100617
  13. ROCEPHIN [Suspect]
     Active Substance: CEFTRIAXONE SODIUM
     Indication: BRONCHITIS
     Dosage: 1 G, QD
     Route: 065
     Dates: start: 20151105, end: 20151109
  14. ISOTONIC SODIUM CHLORIDE SOLUTION [Concomitant]
     Active Substance: SODIUM CHLORIDE
     Dosage: 100 ML, QMO
     Route: 065
  15. LEVOFLOXACIN (NGX) [Suspect]
     Active Substance: LEVOFLOXACIN
     Indication: BRONCHITIS
     Dosage: 400 MG, QD
     Route: 048
     Dates: start: 20151105, end: 20151112

REACTIONS (10)
  - Bronchitis moraxella [Recovered/Resolved]
  - Haemorrhage subcutaneous [Recovered/Resolved]
  - Bronchitis [Recovered/Resolved]
  - Hepatic function abnormal [Recovered/Resolved]
  - Iron deficiency anaemia [Recovering/Resolving]
  - Bronchitis [Recovering/Resolving]
  - Hepatic function abnormal [Recovered/Resolved]
  - Oral herpes [Recovering/Resolving]
  - Herpes zoster [Recovered/Resolved]
  - Gastric polyps [Recovered/Resolved]

NARRATIVE: CASE EVENT DATE: 20150719
